FAERS Safety Report 12546285 (Version 1)
Quarter: 2016Q3

REPORT INFORMATION
  Report Type: Report from Study
  Country: BR (occurrence: BR)
  Receive Date: 20160711
  Receipt Date: 20160711
  Transmission Date: 20161109
  Serious: Yes (Hospitalization, Other)
  Sender: FDA-Public Use
  Company Number: PHHY2016BR091614

PATIENT
  Sex: Male
  Weight: 69 kg

DRUGS (2)
  1. RITALIN [Suspect]
     Active Substance: METHYLPHENIDATE HYDROCHLORIDE
     Indication: ATTENTION DEFICIT/HYPERACTIVITY DISORDER
     Dosage: 10 MG, BID
     Route: 048
     Dates: start: 2006
  2. RITALIN [Suspect]
     Active Substance: METHYLPHENIDATE HYDROCHLORIDE
     Dosage: 20 MG, UNK
     Route: 048

REACTIONS (10)
  - Decreased appetite [Unknown]
  - Sepsis [Recovered/Resolved]
  - Disturbance in attention [Recovering/Resolving]
  - Insomnia [Unknown]
  - Performance status decreased [Recovering/Resolving]
  - Osteopenia [Unknown]
  - Feeling of despair [Unknown]
  - Drug prescribing error [Unknown]
  - Feeling abnormal [Unknown]
  - General physical condition abnormal [Recovered/Resolved]

NARRATIVE: CASE EVENT DATE: 2006
